FAERS Safety Report 8928942 (Version 1)
Quarter: 2012Q4

REPORT INFORMATION
  Report Type: Report from Study
  Country: MX (occurrence: MX)
  Receive Date: 20121127
  Receipt Date: 20121127
  Transmission Date: 20130627
  Serious: Yes (Life-Threatening, Hospitalization)
  Sender: FDA-Public Use
  Company Number: MX-ABBOTT-12P-107-1012997-00

PATIENT
  Age: 0 Year
  Sex: Female
  Weight: 1.2 kg

DRUGS (1)
  1. SYNAGIS [Suspect]
     Indication: ANTIVIRAL PROPHYLAXIS
     Route: 030
     Dates: start: 20120822, end: 20120822

REACTIONS (1)
  - Sepsis neonatal [Recovered/Resolved]
